FAERS Safety Report 18170376 (Version 1)
Quarter: 2020Q3

REPORT INFORMATION
  Report Type: Spontaneous
  Country: US (occurrence: US)
  Receive Date: 20200819
  Receipt Date: 20200819
  Transmission Date: 20201103
  Serious: Yes (Other)
  Sender: FDA-Public Use
  Company Number: US-BRISTOL-MYERS SQUIBB COMPANY-BMS-2020-065850

PATIENT
  Sex: Male
  Weight: 86.1 kg

DRUGS (3)
  1. VITAMIN D [VITAMIN D NOS] [Concomitant]
     Active Substance: VITAMIN D NOS
     Indication: PRODUCT USED FOR UNKNOWN INDICATION
     Dosage: MINIMAL AMOUNT
     Route: 065
  2. ELIQUIS [Suspect]
     Active Substance: APIXABAN
     Indication: EMBOLISM VENOUS
     Dosage: 5 MILLIGRAM, BID
     Route: 048
     Dates: start: 20190925
  3. TAMULOSIN [Concomitant]
     Active Substance: TAMSULOSIN
     Indication: PRODUCT USED FOR UNKNOWN INDICATION
     Route: 065

REACTIONS (14)
  - Chest pain [Unknown]
  - Weight increased [Unknown]
  - Gastrooesophageal reflux disease [Unknown]
  - Moaning [Unknown]
  - Thrombosis [Not Recovered/Not Resolved]
  - Somnolence [Unknown]
  - Myalgia [Unknown]
  - Hiatus hernia [Unknown]
  - Fatigue [Unknown]
  - Arthritis [Unknown]
  - Eructation [Unknown]
  - Impaired quality of life [Unknown]
  - Asthenia [Unknown]
  - Pain [Unknown]
